FAERS Safety Report 5573817-8 (Version None)
Quarter: 2007Q4

REPORT INFORMATION
  Report Type: 
  Country: None (occurrence: None)
  Receive Date: 20071226
  Receipt Date: 20071214
  Transmission Date: 20080405
  Serious: Yes (Hospitalization, Other)
  Sender: FDA-Public Use
  Company Number: US-PFIZER INC-2007106672

PATIENT
  Sex: Male
  Weight: 63.5 kg

DRUGS (4)
  1. CHANTIX [Suspect]
     Indication: SMOKING CESSATION THERAPY
  2. TOPAMAX [Concomitant]
  3. GABITRIL [Concomitant]
  4. SOFTENERS, EMOLLIENTS [Concomitant]

REACTIONS (3)
  - ANGER [None]
  - CONVULSION [None]
  - SUICIDE ATTEMPT [None]
